FAERS Safety Report 5721413-1 (Version None)
Quarter: 2008Q2

REPORT INFORMATION
  Report Type: 
  Country: None (occurrence: None)
  Receive Date: 20080424
  Receipt Date: 20080411
  Transmission Date: 20081010
  Serious: No
  Sender: FDA-Public Use
  Company Number: 2007JP003070

PATIENT
  Age: 75 Year
  Sex: Female
  Weight: 45.7 kg

DRUGS (22)
  1. TACROLIMUS [Suspect]
     Indication: RHEUMATOID ARTHRITIS
     Dosage: 0.5 MG, /D, ORAL; 1 MG, /D, ORAL
     Route: 048
     Dates: start: 20061225, end: 20070207
  2. TACROLIMUS [Suspect]
     Indication: RHEUMATOID ARTHRITIS
     Dosage: 0.5 MG, /D, ORAL; 1 MG, /D, ORAL
     Route: 048
     Dates: start: 20070208, end: 20070508
  3. PREDNISOLONE [Suspect]
     Indication: RHEUMATOID ARTHRITIS
     Dosage: 5 MG, BID, ORAL
     Route: 048
     Dates: start: 20050526
  4. BUCILLAMINE           (BUCILLAMINE) [Concomitant]
  5. RISEDRONATE SODIUM [Concomitant]
  6. MINOCYMIN (MINOCYCLINE HYDROCHLORIDE) [Concomitant]
  7. ISALON (ALDIOXA) [Concomitant]
  8. MUCOSTA (REBAMIPIDE) [Concomitant]
  9. CEROCRAL (IFENPRODIL TARTRATE) [Concomitant]
  10. MARZULENE S (LEVOGLUTAMIDE, SODIUM GUALENATE) [Concomitant]
  11. LANSOPRAZOLE [Concomitant]
  12. AMLODIPINE BESYLATE [Concomitant]
  13. NORVASC [Concomitant]
  14. SIMVASTATIN [Concomitant]
  15. PRAVASTAN (PRAVASTATIN SODIUM) [Concomitant]
  16. METHYCOBAL (MECOBALAMIN) [Concomitant]
  17. PRORANON (PRANOPROFEN) [Concomitant]
  18. TIMOPTIC [Concomitant]
  19. FLUMETHOLON (FLUOROMETHOLONE) [Concomitant]
  20. ACTONEL [Concomitant]
  21. ULGUT (BENEXATE HYDROCHLORIDE) [Concomitant]
  22. LANSOPRAZOLE [Concomitant]

REACTIONS (5)
  - CONDITION AGGRAVATED [None]
  - CONSTIPATION [None]
  - GLYCOSYLATED HAEMOGLOBIN INCREASED [None]
  - RHEUMATOID ARTHRITIS [None]
  - WHITE BLOOD CELL COUNT INCREASED [None]
